FAERS Safety Report 6648779-2 (Version None)
Quarter: 2010Q1

REPORT INFORMATION
  Report Type: 
  Country: None (occurrence: None)
  Receive Date: 20100324
  Receipt Date: 20100311
  Transmission Date: 20100710
  Serious: Yes (Other)
  Sender: FDA-Public Use
  Company Number: PHEH2007US12158

PATIENT
  Sex: Male

DRUGS (13)
  1. ZOMETA [Suspect]
     Dosage: UNK
     Dates: start: 20031126, end: 20070820
  2. PREDNISONE [Concomitant]
     Dosage: UNK
  3. NILANDRON [Concomitant]
     Dosage: UNK
  4. LOPURIN [Concomitant]
     Dosage: UNK
  5. ZITHROMAX [Concomitant]
     Dosage: UNK
  6. COUMADIN [Concomitant]
     Dosage: UNK
  7. VICODIN [Concomitant]
  8. LASIX [Concomitant]
     Dosage: UNK
  9. LOVENOX [Concomitant]
  10. ARANESP [Concomitant]
     Dosage: UNK
  11. VENOFER [Concomitant]
  12. CASODEX [Concomitant]
  13. OXYCONTIN [Concomitant]
     Dosage: UNK

REACTIONS (18)
  - ANAEMIA [None]
  - CACHEXIA [None]
  - CARDIOMEGALY [None]
  - DECUBITUS ULCER [None]
  - DEFORMITY [None]
  - FATIGUE [None]
  - INFECTION [None]
  - MASS [None]
  - NEUROGENIC BLADDER [None]
  - OSTEOARTHRITIS [None]
  - OSTEONECROSIS [None]
  - PAIN [None]
  - SPINAL LAMINECTOMY [None]
  - TOOTH ABSCESS [None]
  - TOOTH INFECTION [None]
  - TOOTH LOSS [None]
  - TRANSURETHRAL PROSTATECTOMY [None]
  - WALKING DISABILITY [None]
